FAERS Safety Report 8816919 (Version 1)
Quarter: 2012Q4

REPORT INFORMATION
  Report Type: Spontaneous
  Country: IT (occurrence: None)
  Receive Date: 20121002
  Receipt Date: 20121002
  Transmission Date: 20130627
  Serious: Yes (Hospitalization)
  Sender: FDA-Public Use
  Company Number: B0834260A

PATIENT
  Age: 24 Month
  Sex: Male

DRUGS (1)
  1. SALBUTAMOL SULPHATE TABLET (GENERIC) (ALBUTEROL SULFATE) [Suspect]
     Route: 048

REACTIONS (2)
  - Urinary retention [None]
  - Eczema [None]
